FAERS Safety Report 4839436-3 (Version None)
Quarter: 2005Q4

REPORT INFORMATION
  Report Type: 
  Country: None (occurrence: None)
  Receive Date: 20051128
  Receipt Date: 20051128
  Transmission Date: 20060501
  Serious: No
  Sender: FDA-Public Use
  Company Number: None

PATIENT
  Age: 2 Year
  Sex: Male
  Weight: 14.0615 kg

DRUGS (1)
  1. CHILDREN'S TYLENOL   160 MG PER 5ML    TYLENOL [Suspect]
     Indication: PYREXIA
     Dosage: 1 TEASPOONFUL   EVERY 6 HOURS  PO
     Route: 048
     Dates: start: 20051120, end: 20051122

REACTIONS (3)
  - IRRITABILITY [None]
  - PSYCHOMOTOR HYPERACTIVITY [None]
  - REACTION TO COLOURING [None]
